FAERS Safety Report 8817659 (Version 1)
Quarter: 2012Q4

REPORT INFORMATION
  Report Type: 
  Country: AR (occurrence: AR)
  Receive Date: 20121001
  Receipt Date: 20121001
  Transmission Date: 20130627
  Serious: Yes (Other)
  Sender: FDA-Public Use
  Company Number: PHHY2012AR084359

PATIENT
  Sex: Male

DRUGS (1)
  1. EXFORGE [Suspect]
     Indication: HYPERTENSION
     Dosage: 1 DF(5 mg amlo/160 mg val) daily
     Dates: start: 2000

REACTIONS (2)
  - Chronic obstructive pulmonary disease [Recovering/Resolving]
  - Total lung capacity decreased [Recovering/Resolving]
